FAERS Safety Report 13073807 (Version 3)
Quarter: 2018Q4

REPORT INFORMATION
  Report Type: Spontaneous
  Country: US (occurrence: US)
  Receive Date: 20161229
  Receipt Date: 20181031
  Transmission Date: 20190204
  Serious: Yes (Other)
  Sender: FDA-Public Use
  Company Number: US-009507513-1612USA014536

PATIENT
  Age: 72 Year
  Sex: Female

DRUGS (10)
  1. NOXAFIL [Suspect]
     Active Substance: POSACONAZOLE
     Indication: PNEUMONIA FUNGAL
     Dosage: 300 MG BY MOUTH DAILY
     Route: 048
  2. ALLOPURINOL. [Concomitant]
     Active Substance: ALLOPURINOL
     Dosage: 300 MG, QD
     Route: 048
  3. VANCOMYCIN [Concomitant]
     Active Substance: VANCOMYCIN
     Dosage: 1 G, Q12H
     Route: 042
  4. DIGOXIN. [Interacting]
     Active Substance: DIGOXIN
     Dosage: 0.25 MG, MONDAY THROUGH FRIDAY
     Route: 048
  5. TORSEMIDE. [Concomitant]
     Active Substance: TORSEMIDE
     Dosage: 20 MG, QD
     Route: 048
  6. VANCOMYCIN [Concomitant]
     Active Substance: VANCOMYCIN
     Indication: FEBRILE NEUTROPENIA
     Dosage: 2.25 G, LOADING DOSE
  7. AZTREONAM. [Concomitant]
     Active Substance: AZTREONAM
     Indication: FEBRILE NEUTROPENIA
     Dosage: 1 G EVERY 6 H INTRAVENOUSLY
     Route: 042
  8. NOXAFIL [Interacting]
     Active Substance: POSACONAZOLE
     Dosage: 300 MG BY MOUTH DAILY
     Route: 048
  9. ESCITALOPRAM [Concomitant]
     Active Substance: ESCITALOPRAM OXALATE
     Dosage: 10 MG, QD
     Route: 048
  10. METRONIDAZOLE. [Concomitant]
     Active Substance: METRONIDAZOLE
     Indication: FEBRILE NEUTROPENIA
     Dosage: 500 MG, Q8H
     Route: 042

REACTIONS (3)
  - Atrial fibrillation [Unknown]
  - Ventricular tachycardia [Recovered/Resolved]
  - Drug interaction [Recovered/Resolved]
